FAERS Safety Report 10561679 (Version 1)
Quarter: 2014Q4

REPORT INFORMATION
  Report Type: Spontaneous
  Country: US (occurrence: US)
  Receive Date: 20141103
  Receipt Date: 20141103
  Transmission Date: 20150529
  Serious: No
  Sender: FDA-Public Use
  Company Number: US-BAXTER-2014BAX062345

PATIENT
  Age: 26 Year
  Sex: Female

DRUGS (1)
  1. TISSEEL VH [Suspect]
     Active Substance: FIBRINOGEN HUMAN\THROMBIN HUMAN
     Indication: GASTRECTOMY
     Route: 061

REACTIONS (1)
  - Urticaria [Recovered/Resolved]
